FAERS Safety Report 21088503 (Version 10)
Quarter: 2024Q4

REPORT INFORMATION
  Report Type: Report from Study
  Country: US (occurrence: US)
  Receive Date: 20220715
  Receipt Date: 20241226
  Transmission Date: 20250115
  Serious: Yes (Hospitalization)
  Sender: TAKEDA
  Company Number: US-TAKEDA-2022TUS047519

PATIENT
  Sex: Female

DRUGS (7)
  1. BRIGATINIB [Suspect]
     Active Substance: BRIGATINIB
     Indication: Metastases to lung
     Dosage: 90 MILLIGRAM, QD
     Dates: start: 20220618
  2. BRIGATINIB [Suspect]
     Active Substance: BRIGATINIB
     Dosage: 180 MILLIGRAM, QD
  3. BRIGATINIB [Suspect]
     Active Substance: BRIGATINIB
     Dosage: 180 MILLIGRAM, QD
  4. BRIGATINIB [Suspect]
     Active Substance: BRIGATINIB
     Dosage: 180 MILLIGRAM, QD
  5. BRIGATINIB [Suspect]
     Active Substance: BRIGATINIB
     Dosage: 180 MILLIGRAM, QD
  6. BRIGATINIB [Suspect]
     Active Substance: BRIGATINIB
     Dosage: 180 MILLIGRAM, QD
  7. BRIGATINIB [Suspect]
     Active Substance: BRIGATINIB
     Dosage: 180 MILLIGRAM, QD

REACTIONS (21)
  - Dysgeusia [Unknown]
  - Feeding disorder [Unknown]
  - Pallor [Unknown]
  - Weight decreased [Unknown]
  - Rash macular [Unknown]
  - Vomiting [Unknown]
  - Nausea [Unknown]
  - Muscle spasms [Unknown]
  - Swelling face [Not Recovered/Not Resolved]
  - Decreased appetite [Unknown]
  - Fatigue [Unknown]
  - Asthenia [Unknown]
  - Skin discolouration [Unknown]
  - Dry throat [Unknown]
  - Cholelithiasis [Unknown]
  - Thirst [Unknown]
  - Skin disorder [Unknown]
  - Feeling hot [Unknown]
  - Hair growth abnormal [Unknown]
  - Illness [Unknown]
  - Suspected counterfeit product [Unknown]
